FAERS Safety Report 7307444-9 (Version None)
Quarter: 2011Q1

REPORT INFORMATION
  Report Type: 
  Country: None (occurrence: None)
  Receive Date: 20110119
  Receipt Date: 20101227
  Transmission Date: 20110831
  Serious: No
  Sender: FDA-Public Use
  Company Number: A-US2010-41618

PATIENT
  Age: 76 Year
  Sex: Female
  Weight: 77.1 kg

DRUGS (5)
  1. TRACLEER [Suspect]
     Indication: PULMONARY ARTERIAL HYPERTENSION
     Dosage: 125 MG, BID, ORAL, 62.5 MG, BID, ORAL, 62.5 MG,  BID, ORAL
     Route: 048
     Dates: start: 20101118, end: 20101122
  2. TRACLEER [Suspect]
     Indication: PULMONARY ARTERIAL HYPERTENSION
     Dosage: 125 MG, BID, ORAL, 62.5 MG, BID, ORAL, 62.5 MG,  BID, ORAL
     Route: 048
     Dates: start: 20101021, end: 20101117
  3. TRACLEER [Suspect]
     Indication: PULMONARY ARTERIAL HYPERTENSION
     Dosage: 125 MG, BID, ORAL, 62.5 MG, BID, ORAL, 62.5 MG,  BID, ORAL
     Route: 048
     Dates: start: 20101123
  4. VENTAVIS [Concomitant]
  5. COUMADIN [Concomitant]

REACTIONS (3)
  - DYSPNOEA [None]
  - OEDEMA PERIPHERAL [None]
  - CHEST DISCOMFORT [None]
